FAERS Safety Report 5810859-9 (Version None)
Quarter: 2008Q3

REPORT INFORMATION
  Report Type: 
  Country: None (occurrence: None)
  Receive Date: 20080710
  Receipt Date: 20080701
  Transmission Date: 20090109
  Serious: Yes (Other)
  Sender: FDA-Public Use
  Company Number: 19541

PATIENT
  Age: 75 Year
  Sex: Male

DRUGS (10)
  1. LEUCOVORIN CALCIUM [Suspect]
     Indication: COLON CANCER
     Dates: start: 20051223, end: 20060101
  2. LEUCOVORIN CALCIUM [Suspect]
     Indication: COLON CANCER
     Dates: start: 20051223, end: 20060101
  3. FLUOROURACIL [Suspect]
     Indication: COLON CANCER
     Dates: start: 20051223, end: 20060101
  4. FLUOROURACIL [Suspect]
     Indication: COLON CANCER
     Dates: start: 20051223, end: 20060101
  5. OXALIPLATIN [Suspect]
     Indication: COLON CANCER
     Dates: start: 20051223, end: 20060101
  6. OXALIPLATIN [Suspect]
     Indication: COLON CANCER
     Dates: start: 20051223, end: 20060101
  7. ALDACTONE [Concomitant]
  8. QUINAPRIL [Concomitant]
  9. LASIX [Concomitant]
  10. FLOMAX [Concomitant]

REACTIONS (3)
  - EYE DISORDER [None]
  - NEUROPATHY PERIPHERAL [None]
  - TUNNEL VISION [None]
